FAERS Safety Report 5669362-1 (Version None)
Quarter: 2008Q1

REPORT INFORMATION
  Report Type: 
  Country: None (occurrence: None)
  Receive Date: 20080317
  Receipt Date: 20080305
  Transmission Date: 20080703
  Serious: Yes (Hospitalization, Other)
  Sender: FDA-Public Use
  Company Number: US-MERCK-0711USA01866

PATIENT
  Age: 68 Year
  Sex: Female

DRUGS (2)
  1. FOSAMAX [Suspect]
     Indication: OSTEOPOROSIS
     Route: 048
     Dates: start: 19970101, end: 20060901
  2. SYNTHROID [Concomitant]
     Indication: THYROID DISORDER
     Route: 065
     Dates: start: 19800101

REACTIONS (7)
  - ARTHRITIS [None]
  - FALL [None]
  - FRACTURE [None]
  - GOUT [None]
  - INCONTINENCE [None]
  - OESOPHAGEAL INJURY [None]
  - OSTEONECROSIS [None]
